FAERS Safety Report 13263317 (Version 2)
Quarter: 2017Q1

REPORT INFORMATION
  Report Type: Report from Study
  Country: CO (occurrence: CO)
  Receive Date: 20170223
  Receipt Date: 20170302
  Transmission Date: 20170428
  Serious: Yes (Other)
  Sender: FDA-Public Use
  Company Number: CO-AMGEN-COLSL2017026293

PATIENT
  Age: 16 Year
  Sex: Female
  Weight: 65 kg

DRUGS (3)
  1. NPLATE [Suspect]
     Active Substance: ROMIPLOSTIM
     Indication: IMMUNE THROMBOCYTOPENIC PURPURA
     Dosage: 100 MCG, QWK
     Route: 058
     Dates: start: 20170207
  2. NPLATE [Suspect]
     Active Substance: ROMIPLOSTIM
     Dosage: 100 MCG, QWK
     Route: 058
     Dates: start: 20170214
  3. NPLATE [Suspect]
     Active Substance: ROMIPLOSTIM
     Dosage: 150 MCG, QWK
     Route: 058
     Dates: start: 20170223

REACTIONS (2)
  - Off label use [Not Recovered/Not Resolved]
  - Thrombocytosis [Not Recovered/Not Resolved]

NARRATIVE: CASE EVENT DATE: 20170207
